FAERS Safety Report 18691853 (Version 2)
Quarter: 2021Q1

REPORT INFORMATION
  Report Type: Spontaneous
  Country: US (occurrence: US)
  Receive Date: 20210102
  Receipt Date: 20210111
  Transmission Date: 20210419
  Serious: Yes (Hospitalization, Other)
  Sender: FDA-Public Use
  Company Number: US-AUROBINDO-AUR-APL-2020-063869

PATIENT
  Age: 58 Year
  Sex: Male

DRUGS (1)
  1. ACETAMINOPHEN. [Suspect]
     Active Substance: ACETAMINOPHEN
     Indication: TOOTHACHE
     Dosage: 9 GRAM TOTAL
     Route: 065

REACTIONS (4)
  - Acute hepatic failure [Recovering/Resolving]
  - Renal tubular disorder [Recovering/Resolving]
  - Acute kidney injury [Recovering/Resolving]
  - Accidental overdose [Recovering/Resolving]
